FAERS Safety Report 21816105 (Version 1)
Quarter: 2023Q1

REPORT INFORMATION
  Report Type: Spontaneous
  Country: US (occurrence: None)
  Receive Date: 20230103
  Receipt Date: 20230103
  Transmission Date: 20230418
  Serious: Yes (Death)
  Sender: FDA-Public Use
  Company Number: None

PATIENT
  Age: 74 Year
  Sex: Male
  Weight: 89.63 kg

DRUGS (9)
  1. ERLOTINIB [Suspect]
     Active Substance: ERLOTINIB
     Indication: Lung neoplasm malignant
     Dosage: FREQUENCY : DAILY;?
     Route: 048
  2. BENADRYL [Concomitant]
  3. CYRAMZA [Concomitant]
  4. FUROSEMIDE [Concomitant]
  5. KRILL OIL [Concomitant]
  6. LISINOPRIL [Concomitant]
  7. TAGRISSO [Concomitant]
  8. TAMSULOSIN [Concomitant]
  9. PSYLLIUM FIBER [Concomitant]

REACTIONS (1)
  - Death [None]
